FAERS Safety Report 6734359-7 (Version None)
Quarter: 2010Q2

REPORT INFORMATION
  Report Type: 
  Country: None (occurrence: None)
  Receive Date: 20100520
  Receipt Date: 20100511
  Transmission Date: 20101027
  Serious: Yes (Other)
  Sender: FDA-Public Use
  Company Number: US-ASTRAZENECA-2010SE21519

PATIENT
  Age: 82 Year
  Sex: Female

DRUGS (5)
  1. NEXIUM [Suspect]
     Indication: GASTROOESOPHAGEAL REFLUX DISEASE
     Route: 048
     Dates: start: 20010101
  2. AEROBID [Concomitant]
  3. SEREVENT [Concomitant]
  4. THEOPHYLLINE [Concomitant]
  5. LIPITOR [Concomitant]

REACTIONS (2)
  - FRACTURE [None]
  - OSTEOPOROSIS [None]
